FAERS Safety Report 6599269-7 (Version None)
Quarter: 2010Q1

REPORT INFORMATION
  Report Type: 
  Country: None (occurrence: None)
  Receive Date: 20100224
  Receipt Date: 20100219
  Transmission Date: 20100710
  Serious: Yes (Death, Hospitalization)
  Sender: FDA-Public Use
  Company Number: PHHY2010JP04128

PATIENT
  Sex: Female

DRUGS (7)
  1. SANDIMMUNE [Suspect]
     Indication: APLASTIC ANAEMIA
     Dosage: 100 MG/DAY
     Route: 048
  2. SANDIMMUNE [Suspect]
     Dosage: 50 MG/DAY
     Route: 048
  3. SANDIMMUNE [Suspect]
     Dosage: 200 MG/DAY
     Route: 048
  4. SANDIMMUNE [Suspect]
     Dosage: 150 MG/DAY
     Route: 048
  5. SANDIMMUNE [Suspect]
     Dosage: 100 MG/DAY
     Route: 048
  6. SANDIMMUNE [Suspect]
     Dosage: 50 MG/DAY
     Route: 048
  7. SANDIMMUNE [Suspect]
     Dosage: 200 MG/DAY
     Route: 048

REACTIONS (2)
  - APLASTIC ANAEMIA [None]
  - PNEUMONIA [None]
